FAERS Safety Report 9425972 (Version 1)
Quarter: 2013Q3

REPORT INFORMATION
  Report Type: Spontaneous
  Country: US (occurrence: US)
  Receive Date: 20130729
  Receipt Date: 20130729
  Transmission Date: 20140515
  Serious: Yes (Other)
  Sender: FDA-Public Use
  Company Number: US-009507513-1307USA014483

PATIENT
  Sex: 0

DRUGS (1)
  1. AFRIN SPRAY [Suspect]
     Indication: NASAL CONGESTION
     Dosage: 2 DF, QPM
     Route: 045

REACTIONS (3)
  - Cerebrovascular accident [Unknown]
  - Myocardial infarction [Unknown]
  - Incorrect drug administration duration [Unknown]
